FAERS Safety Report 7129084-7 (Version None)
Quarter: 2010Q4

REPORT INFORMATION
  Report Type: 
  Country: None (occurrence: None)
  Receive Date: 20101130
  Receipt Date: 20101123
  Transmission Date: 20110411
  Serious: Yes (Other)
  Sender: FDA-Public Use
  Company Number: PT-ROCHE-744529

PATIENT

DRUGS (2)
  1. HERCEPTIN [Suspect]
     Indication: BREAST CANCER
     Dosage: START AND STOP DATE BETWEEN 1996 AND 2000.
     Route: 065
  2. HERCEPTIN [Suspect]
     Dosage: LOADING DOSE OF 450MG.
     Route: 065
     Dates: start: 20090101

REACTIONS (1)
  - METASTASES TO LYMPH NODES [None]
